FAERS Safety Report 6415577-4 (Version None)
Quarter: 2009Q4

REPORT INFORMATION
  Report Type: 
  Country: None (occurrence: None)
  Receive Date: 20091027
  Receipt Date: 20091020
  Transmission Date: 20100525
  Serious: Yes (Death)
  Sender: FDA-Public Use
  Company Number: ZA-ROCHE-611808

PATIENT
  Sex: Male
  Weight: 76.5 kg

DRUGS (5)
  1. METHOXY POLYETHYLENE GLYCOL-EPOETIN BETA [Suspect]
     Dosage: DOSAGE FORM:VIALS.
     Route: 042
     Dates: start: 20041118, end: 20090109
  2. METHOXY POLYETHYLENE GLYCOL-EPOETIN BETA [Suspect]
     Route: 042
  3. AMLODIPINE [Concomitant]
     Dates: start: 20060412, end: 20090126
  4. PERINDOPRIL [Concomitant]
     Dates: start: 20080107, end: 20090126
  5. ALPHA 1 MEG [Concomitant]
     Dosage: DRUG REPORTED AS ONE-ALPHA
     Dates: start: 20080331, end: 20090126

REACTIONS (1)
  - POST PROCEDURAL SEPSIS [None]
